FAERS Safety Report 6395582-7 (Version None)
Quarter: 2009Q4

REPORT INFORMATION
  Report Type: 
  Country: None (occurrence: None)
  Receive Date: 20091009
  Receipt Date: 20091005
  Transmission Date: 20100525
  Serious: Yes (Hospitalization)
  Sender: FDA-Public Use
  Company Number: AU-PURDUE-USA-2009-0040174

PATIENT
  Age: 67 Year
  Sex: Female

DRUGS (6)
  1. OXYIR CAPSULES 5 MG [Suspect]
     Indication: DRUG USE FOR UNKNOWN INDICATION
     Dosage: UNK MG, DAILY
  2. CITALOPRAM HYDROBROMIDE [Suspect]
     Indication: DRUG USE FOR UNKNOWN INDICATION
     Dosage: 60 MG, DAILY
     Route: 048
  3. CHOLECALCIFEROL [Concomitant]
     Indication: DRUG USE FOR UNKNOWN INDICATION
  4. METOPROLOL SUCCINATE [Concomitant]
     Indication: DRUG USE FOR UNKNOWN INDICATION
  5. PANTOPRAZOLE SODIUM [Concomitant]
     Indication: DRUG USE FOR UNKNOWN INDICATION
  6. ROSUVASTATIN CALCIUM [Concomitant]
     Indication: DRUG USE FOR UNKNOWN INDICATION

REACTIONS (1)
  - SEROTONIN SYNDROME [None]
